FAERS Safety Report 21706726 (Version 1)
Quarter: 2022Q4

REPORT INFORMATION
  Report Type: Spontaneous
  Country: US (occurrence: US)
  Receive Date: 20221209
  Receipt Date: 20221209
  Transmission Date: 20230113
  Serious: No
  Sender: FDA-Public Use
  Company Number: US-PFIZER INC-202201353307

PATIENT
  Sex: Female

DRUGS (2)
  1. PAXLOVID [Suspect]
     Active Substance: NIRMATRELVIR\RITONAVIR
     Dosage: MORNING DOSE
     Dates: start: 20221205
  2. ST. JOHN^S WORT [Suspect]
     Active Substance: ST. JOHN^S WORT
     Dosage: 100 MG, DAILY (THE LAST DOSE WAS TAKEN IN THE EVENING)
     Dates: end: 20221204

REACTIONS (1)
  - Contraindicated product administered [Unknown]
